FAERS Safety Report 8957711 (Version 2)
Quarter: 2013Q1

REPORT INFORMATION
  Report Type: Spontaneous
  Country: US (occurrence: US)
  Receive Date: 20121211
  Receipt Date: 20130109
  Transmission Date: 20140127
  Serious: Yes (Hospitalization)
  Sender: FDA-Public Use
  Company Number: US-ALEXION PHARMACEUTICALS INC.-A201202323

PATIENT
  Age: 78 Year
  Sex: Female

DRUGS (8)
  1. SOLIRIS 300MG [Suspect]
     Indication: PAROXYSMAL NOCTURNAL HAEMOGLOBINURIA
     Dosage: 900 MG, Q2W
     Route: 042
  2. NITROGLYCERIN [Concomitant]
     Indication: ANGINA PECTORIS
  3. BICITRA [Concomitant]
     Dosage: 10 ML, QID
     Route: 048
  4. APRESOLINE [Concomitant]
     Dosage: 60 MG, BID
     Route: 048
  5. VERAPAMIL [Concomitant]
     Dosage: 240 MG, QD
     Route: 048
  6. ASPIRIN [Concomitant]
  7. PLAVIX [Concomitant]
  8. INFLUENZA VACCINE [Concomitant]
     Indication: IMMUNISATION
     Dosage: UNK
     Dates: start: 20120925, end: 20120925

REACTIONS (5)
  - Pneumobilia [Recovered/Resolved]
  - Urinary tract infection [Recovered/Resolved]
  - Blood creatine increased [Unknown]
  - Blood alkaline phosphatase increased [Unknown]
  - Epistaxis [Recovered/Resolved]
